FAERS Safety Report 10424986 (Version 2)
Quarter: 2014Q4

REPORT INFORMATION
  Report Type: Spontaneous
  Country: US (occurrence: None)
  Receive Date: 20140722
  Receipt Date: 20141020
  Transmission Date: 20150528
  Serious: No
  Sender: FDA-Public Use
  Company Number: AEGR000496

PATIENT
  Age: 50 Year
  Sex: Female
  Weight: 148.8 kg

DRUGS (8)
  1. ANTARA [Concomitant]
     Active Substance: FENOFIBRATE
  2. ZETIA [Concomitant]
     Active Substance: EZETIMIBE
  3. TRIAMTERENE/HCTZ (HYDROCHLOROTHIAZIDE, TRIAMTERENE) [Concomitant]
  4. VITAMIN E [Concomitant]
     Active Substance: .ALPHA.-TOCOPHEROL
  5. JUXTAPID [Suspect]
     Active Substance: LOMITAPIDE MESYLATE
     Indication: TYPE IIA HYPERLIPIDAEMIA
     Route: 048
     Dates: start: 20140508
  6. AMLODIPINE (AMLODIPINE BESILATE) [Concomitant]
  7. OMEGA 3-6-9 (FISH OIL, TOCOPHEROL) [Concomitant]
  8. LISINOPRIL. [Concomitant]
     Active Substance: LISINOPRIL

REACTIONS (2)
  - Constipation [None]
  - Weight decreased [None]

NARRATIVE: CASE EVENT DATE: 201405
